FAERS Safety Report 8346209-6 (Version None)
Quarter: 2012Q2

REPORT INFORMATION
  Report Type: 
  Country: None (occurrence: None)
  Receive Date: 20120507
  Receipt Date: 20120420
  Transmission Date: 20120825
  Serious: Yes (Other)
  Sender: FDA-Public Use
  Company Number: US-2012-1872

PATIENT
  Age: 6 Year
  Sex: Female

DRUGS (8)
  1. VINORELBINE [Suspect]
     Indication: HODGKIN'S DISEASE
  2. VINORELBINE [Suspect]
     Indication: DIFFUSE LARGE B-CELL LYMPHOMA
  3. IFOSFAMIDE [Suspect]
     Indication: HODGKIN'S DISEASE
  4. IFOSFAMIDE [Suspect]
     Indication: DIFFUSE LARGE B-CELL LYMPHOMA
  5. MESNA [Suspect]
     Indication: DIFFUSE LARGE B-CELL LYMPHOMA
  6. MESNA [Suspect]
     Indication: HODGKIN'S DISEASE
  7. FILGRASTIM (FILGRASTIM) [ REGIMEN #1 [Suspect]
     Indication: DIFFUSE LARGE B-CELL LYMPHOMA
  8. FILGRASTIM (FILGRASTIM) [ REGIMEN #1 [Suspect]
     Indication: HODGKIN'S DISEASE

REACTIONS (5)
  - LEUKOPENIA [None]
  - OFF LABEL USE [None]
  - GASTROINTESTINAL ISCHAEMIA [None]
  - HODGKIN'S DISEASE [None]
  - PYREXIA [None]
